FAERS Safety Report 18190753 (Version 1)
Quarter: 2020Q3

REPORT INFORMATION
  Report Type: Spontaneous
  Country: US (occurrence: US)
  Receive Date: 20200824
  Receipt Date: 20200824
  Transmission Date: 20201103
  Serious: No
  Sender: FDA-Public Use
  Company Number: US-ACTELION-A-NJ2020-208680

PATIENT
  Sex: Male

DRUGS (3)
  1. BOSENTAN. [Suspect]
     Active Substance: BOSENTAN
     Indication: PRODUCT USED FOR UNKNOWN INDICATION
     Route: 065
  2. TRACLEER [Suspect]
     Active Substance: BOSENTAN
     Indication: PULMONARY ARTERIAL HYPERTENSION
     Dosage: 125 MG, BID
     Route: 048
  3. ADCIRCA [Concomitant]
     Active Substance: TADALAFIL

REACTIONS (1)
  - Adverse event [Unknown]
